FAERS Safety Report 7539630-7 (Version None)
Quarter: 2011Q2

REPORT INFORMATION
  Report Type: 
  Country: None (occurrence: None)
  Receive Date: 20110609
  Receipt Date: 20110609
  Transmission Date: 20111010
  Serious: Yes (Other)
  Sender: FDA-Public Use
  Company Number: None

PATIENT
  Sex: Male
  Weight: 95.2554 kg

DRUGS (2)
  1. CREST PRO HEALTH TOOTHPASTE ? CREST / PROCTOR + GAMBLE [Suspect]
     Indication: DENTAL DISORDER PROPHYLAXIS
     Dosage: 10ML 2X DAILY PO
     Route: 048
     Dates: start: 20100101, end: 20110606
  2. CREST PRO HEALTH MOUTHWASH ? CREST / PROCTOR + GAMBLE [Suspect]
     Indication: DENTAL DISORDER PROPHYLAXIS
     Dosage: 15ML 1X DAILY PO
     Route: 048
     Dates: start: 20100101, end: 20110606

REACTIONS (2)
  - DYSGEUSIA [None]
  - TOOTH DISCOLOURATION [None]
